FAERS Safety Report 22226257 (Version 4)
Quarter: 2023Q2

REPORT INFORMATION
  Report Type: Report from Study
  Country: FR (occurrence: FR)
  Receive Date: 20230419
  Receipt Date: 20230529
  Transmission Date: 20230721
  Serious: Yes (Hospitalization)
  Sender: FDA-Public Use
  Company Number: FR-ABBVIE-4733928

PATIENT
  Age: 81 Year
  Sex: Male

DRUGS (4)
  1. CARBIDOPA\LEVODOPA [Suspect]
     Active Substance: CARBIDOPA\LEVODOPA
     Indication: Parkinson^s disease
     Dosage: DISCONTINUED IN 2023
     Route: 050
     Dates: start: 20230203
  2. CARBIDOPA\LEVODOPA [Suspect]
     Active Substance: CARBIDOPA\LEVODOPA
     Dosage: CONTINUOUS FLOW RATE 7 ML/H
     Route: 050
     Dates: start: 20230510, end: 20230523
  3. CARBIDOPA\LEVODOPA [Suspect]
     Active Substance: CARBIDOPA\LEVODOPA
     Route: 050
     Dates: start: 20230324, end: 20230510
  4. CARBIDOPA\LEVODOPA [Suspect]
     Active Substance: CARBIDOPA\LEVODOPA
     Dosage: MORNING EXTRA DOSE 14ML, FLOW RATE 8ML/H
     Route: 050
     Dates: start: 20230524

REACTIONS (3)
  - General physical health deterioration [Not Recovered/Not Resolved]
  - Asthenia [Not Recovered/Not Resolved]
  - Bradykinesia [Not Recovered/Not Resolved]

NARRATIVE: CASE EVENT DATE: 20230414
